FAERS Safety Report 17755934 (Version 1)
Quarter: 2020Q2

REPORT INFORMATION
  Report Type: Spontaneous
  Country: US (occurrence: US)
  Receive Date: 20200507
  Receipt Date: 20200507
  Transmission Date: 20200714
  Serious: Yes (Other)
  Sender: FDA-Public Use
  Company Number: None

PATIENT
  Age: 49 Year
  Sex: Male
  Weight: 90 kg

DRUGS (10)
  1. EFFEXOR XR [Concomitant]
     Active Substance: VENLAFAXINE HYDROCHLORIDE
  2. MOBIC [Concomitant]
     Active Substance: MELOXICAM
  3. LOSARTAN. [Concomitant]
     Active Substance: LOSARTAN
  4. LYRICA [Suspect]
     Active Substance: PREGABALIN
     Indication: NEURALGIA
     Route: 048
  5. DICYCLOMINE [Concomitant]
     Active Substance: DICYCLOMINE HYDROCHLORIDE
  6. LYRICA [Suspect]
     Active Substance: PREGABALIN
     Indication: PAIN
     Route: 048
  7. AMLODIPINE [Concomitant]
     Active Substance: AMLODIPINE BESYLATE
  8. PEPCID [Concomitant]
     Active Substance: FAMOTIDINE
  9. MIRBETRIQ [Concomitant]
  10. XANAX [Concomitant]
     Active Substance: ALPRAZOLAM

REACTIONS (3)
  - Drug dependence [None]
  - Drug withdrawal syndrome [None]
  - Hypersomnia [None]

NARRATIVE: CASE EVENT DATE: 20200503
